FAERS Safety Report 11258190 (Version 1)
Quarter: 2015Q2

REPORT INFORMATION
  Report Type: Spontaneous
  Country: US (occurrence: None)
  Receive Date: 20150617
  Receipt Date: 20150617
  Transmission Date: 20150821
  Serious: No
  Sender: FDA-Public Use
  Company Number: 2014TASUS000583

PATIENT
  Age: 50 Year
  Sex: Male
  Weight: 79.4 kg

DRUGS (1)
  1. HETLIOZ [Suspect]
     Active Substance: TASIMELTEON
     Indication: CIRCADIAN RHYTHM SLEEP DISORDER

REACTIONS (1)
  - Somnolence [None]

NARRATIVE: CASE EVENT DATE: 20141115
